FAERS Safety Report 11958962 (Version 1)
Quarter: 2016Q1

REPORT INFORMATION
  Report Type: Report from Study
  Country: BR (occurrence: BR)
  Receive Date: 20160126
  Receipt Date: 20160126
  Transmission Date: 20160526
  Serious: Yes (Hospitalization, Other)
  Sender: FDA-Public Use
  Company Number: BR-ROCHE-1697585

PATIENT
  Sex: Female
  Weight: 59 kg

DRUGS (6)
  1. ACTEMRA [Suspect]
     Active Substance: TOCILIZUMAB
     Indication: RHEUMATOID ARTHRITIS
     Dosage: DATE OF LAST DOSE PRIOR TO SAE: ON 01/DEC/2015
     Route: 042
     Dates: start: 20151101
  2. APROZIDE (BRAZIL) [Concomitant]
     Indication: HYPERTENSION
     Dosage: DOSE- 300/12.5MG
     Route: 065
  3. CORTISONE [Concomitant]
     Active Substance: CORTISONE\HYDROCORTISONE
     Route: 065
  4. DONAREN [Concomitant]
     Active Substance: TRAZODONE HYDROCHLORIDE
     Route: 065
  5. DEFLAZACORT [Concomitant]
     Active Substance: DEFLAZACORT
     Route: 065
  6. LANSOPRAZOLE. [Concomitant]
     Active Substance: LANSOPRAZOLE
     Indication: GASTRIC DISORDER
     Route: 065

REACTIONS (7)
  - Rheumatoid arthritis [Unknown]
  - Anaemia [Unknown]
  - Pain [Unknown]
  - Peripheral swelling [Unknown]
  - Activities of daily living impaired [Unknown]
  - Immunodeficiency [Unknown]
  - Blood glucose increased [Unknown]
